FAERS Safety Report 6256034-8 (Version None)
Quarter: 2009Q2

REPORT INFORMATION
  Report Type: 
  Country: None (occurrence: None)
  Receive Date: 20090630
  Receipt Date: 20090630
  Transmission Date: 20091009
  Serious: No
  Sender: FDA-Public Use
  Company Number: None

PATIENT
  Age: 68 Year
  Sex: Male
  Weight: 81.6475 kg

DRUGS (1)
  1. LEVAQUIN [Suspect]
     Indication: BRONCHITIS BACTERIAL
     Dosage: 250 MG TWICE DAILY PO
     Route: 048
     Dates: start: 20090115, end: 20090125

REACTIONS (3)
  - GAIT DISTURBANCE [None]
  - MUSCLE RUPTURE [None]
  - WEIGHT BEARING DIFFICULTY [None]
